FAERS Safety Report 5485326-5 (Version None)
Quarter: 2007Q4

REPORT INFORMATION
  Report Type: 
  Country: None (occurrence: None)
  Receive Date: 20071010
  Receipt Date: 20071010
  Transmission Date: 20080405
  Serious: Yes (Other)
  Sender: FDA-Public Use
  Company Number: None

PATIENT
  Age: 45 Year
  Sex: Female
  Weight: 65.7716 kg

DRUGS (1)
  1. CHANTIX [Suspect]
     Indication: SMOKING CESSATION THERAPY
     Dates: start: 20070501, end: 20070528

REACTIONS (15)
  - ABDOMINAL DISTENSION [None]
  - ASTHENIA [None]
  - BACK PAIN [None]
  - BLOOD PRESSURE DIASTOLIC INCREASED [None]
  - CONSTIPATION [None]
  - ENTEROCOLITIS INFECTIOUS [None]
  - FATIGUE [None]
  - FLATULENCE [None]
  - GALLBLADDER DISORDER [None]
  - INSOMNIA [None]
  - LYMPHADENOPATHY [None]
  - MULTI-ORGAN DISORDER [None]
  - RECTAL TENESMUS [None]
  - UTERINE CYST [None]
  - WEIGHT INCREASED [None]
